FAERS Safety Report 24401917 (Version 1)
Quarter: 2024Q4

REPORT INFORMATION
  Report Type: Spontaneous
  Country: CA (occurrence: CA)
  Receive Date: 20241007
  Receipt Date: 20241007
  Transmission Date: 20250115
  Serious: Yes (Life-Threatening, Other)
  Sender: ACCORD
  Company Number: None

PATIENT
  Age: 55 Year
  Sex: Female

DRUGS (8)
  1. PACLITAXEL [Suspect]
     Active Substance: PACLITAXEL
     Indication: Chemotherapy
     Dosage: SOLUTION INTRAVENOUS, ONCE
     Route: 042
  2. AMLODIPINE [Concomitant]
     Active Substance: AMLODIPINE BESYLATE
     Route: 065
  3. CARBOPLATIN [Concomitant]
     Active Substance: CARBOPLATIN
     Dosage: SOLUTION INTRAVENOUS
  4. EMEND [Concomitant]
     Active Substance: APREPITANT
  5. LORAZEPAM [Concomitant]
     Active Substance: LORAZEPAM
     Route: 065
  6. OLANZAPINE [Concomitant]
     Active Substance: OLANZAPINE
  7. ONDANSETRON [Concomitant]
     Active Substance: ONDANSETRON
  8. PEGFILGRASTIM [Concomitant]
     Active Substance: PEGFILGRASTIM

REACTIONS (6)
  - Agonal respiration [Recovering/Resolving]
  - Anaphylactic reaction [Recovering/Resolving]
  - Cardiac arrest [Recovering/Resolving]
  - Chest pain [Recovering/Resolving]
  - Feeling hot [Recovering/Resolving]
  - Unresponsive to stimuli [Recovering/Resolving]
